FAERS Safety Report 7417703-7 (Version None)
Quarter: 2011Q2

REPORT INFORMATION
  Report Type: 
  Country: None (occurrence: None)
  Receive Date: 20110415
  Receipt Date: 20110406
  Transmission Date: 20111010
  Serious: Yes (Death, Hospitalization)
  Sender: FDA-Public Use
  Company Number: US-CELGENEUS-163-21880-11040039

PATIENT
  Sex: Male
  Weight: 72.64 kg

DRUGS (6)
  1. CORTISONE [Concomitant]
     Dosage: 1 PERCENT
     Route: 061
  2. AMBIEN [Concomitant]
     Dosage: 5 MILLIGRAM
     Route: 048
  3. ACYCLOVIR [Concomitant]
     Dosage: 200 MILLIGRAM
     Route: 048
  4. REVLIMID [Suspect]
     Dosage: 10 MILLIGRAM
     Route: 048
     Dates: start: 20110307, end: 20110321
  5. REVLIMID [Suspect]
     Dosage: 25 MILLIGRAM
     Route: 048
     Dates: start: 20110203, end: 20110218
  6. GABAPENTIN [Concomitant]
     Dosage: 100 MILLIGRAM
     Route: 048

REACTIONS (4)
  - PNEUMONIA [None]
  - WHITE BLOOD CELL COUNT DECREASED [None]
  - RASH [None]
  - DEATH [None]
